FAERS Safety Report 25662211 (Version 1)
Quarter: 2025Q3

REPORT INFORMATION
  Report Type: Spontaneous
  Country: RU (occurrence: RU)
  Receive Date: 20250810
  Receipt Date: 20250810
  Transmission Date: 20251020
  Serious: Yes (Other)
  Sender: ACCORD
  Company Number: RU-MLMSERVICE-20250723-PI584439-00077-1

PATIENT
  Age: 57 Year
  Sex: Female

DRUGS (4)
  1. CAPECITABINE [Suspect]
     Active Substance: CAPECITABINE
     Indication: Colon cancer stage III
     Dates: start: 202107, end: 202201
  2. CAPECITABINE [Suspect]
     Active Substance: CAPECITABINE
     Indication: Metastases to lymph nodes
     Dates: start: 202107, end: 202201
  3. CAPECITABINE [Suspect]
     Active Substance: CAPECITABINE
     Indication: Rectosigmoid cancer stage I
     Dates: start: 202107, end: 202201
  4. CAPECITABINE [Suspect]
     Active Substance: CAPECITABINE
     Indication: Small intestine carcinoma
     Dates: start: 202107, end: 202201

REACTIONS (1)
  - Gastroenteritis [Unknown]
